FAERS Safety Report 8729555 (Version 4)
Quarter: 2013Q1

REPORT INFORMATION
  Report Type: Report from Study
  Country: FR (occurrence: FR)
  Receive Date: 20120817
  Receipt Date: 20130320
  Transmission Date: 20140127
  Serious: Yes (Hospitalization)
  Sender: FDA-Public Use
  Company Number: FR-ROCHE-1101647

PATIENT
  Sex: Male
  Weight: 105 kg

DRUGS (13)
  1. PEG-INTERFERON ALFA 2A [Suspect]
     Indication: HEPATITIS B
     Route: 065
     Dates: start: 20111028
  2. VIREAD [Concomitant]
     Indication: HEPATITIS B
     Route: 065
  3. VIREAD [Concomitant]
     Route: 065
  4. DIFFU-K [Concomitant]
     Indication: HYPERTENSION
     Route: 065
     Dates: start: 20111129
  5. SEVIKAR [Concomitant]
     Indication: HYPERTENSION
     Route: 065
     Dates: start: 20111129
  6. FLUDEX [Concomitant]
     Indication: HYPERTENSION
  7. ZEFFIX [Concomitant]
     Indication: HEPATITIS B
     Route: 065
  8. ONBREZ [Concomitant]
     Route: 065
     Dates: start: 20120626
  9. SPIRIVA [Concomitant]
     Route: 065
     Dates: start: 20120626
  10. CEFTRIAXONE [Concomitant]
     Route: 065
  11. RULID [Concomitant]
     Route: 065
  12. CLAMOXYL (AMOXICILLIN TRIHYDRATE) [Concomitant]
     Route: 048
  13. DAFALGAN [Concomitant]
     Route: 065

REACTIONS (1)
  - Lung disorder [Recovered/Resolved]
